FAERS Safety Report 21979374 (Version 1)
Quarter: 2023Q1

REPORT INFORMATION
  Report Type: Report from Study
  Country: ES (occurrence: ES)
  Receive Date: 20230210
  Receipt Date: 20230210
  Transmission Date: 20230418
  Serious: Yes (Other)
  Sender: FDA-Public Use
  Company Number: ES-SA-SAC20230202000882

PATIENT
  Age: 84 Year
  Sex: Female
  Weight: 70 kg

DRUGS (5)
  1. PIROXICAM [Suspect]
     Active Substance: PIROXICAM
     Indication: Pneumonia
     Dosage: UNK, DAILY
     Route: 048
     Dates: start: 20230128
  2. PIROXICAM [Suspect]
     Active Substance: PIROXICAM
     Dosage: UNK, 2X/DAY
     Route: 048
  3. INSULIN GLARGINE [Suspect]
     Active Substance: INSULIN GLARGINE
     Indication: Type 2 diabetes mellitus
     Dosage: 32 IU, 1X/DAY
     Route: 058
     Dates: start: 2016
  4. APIDRA [Suspect]
     Active Substance: INSULIN GLULISINE
     Indication: Type 2 diabetes mellitus
     Dosage: UNK
     Route: 058
  5. APIDRA [Suspect]
     Active Substance: INSULIN GLULISINE
     Dosage: 6 IU
     Route: 058

REACTIONS (2)
  - Pneumonia [Unknown]
  - Diabetes mellitus inadequate control [Not Recovered/Not Resolved]
